FAERS Safety Report 10021753 (Version 1)
Quarter: 2014Q1

REPORT INFORMATION
  Report Type: Spontaneous
  Country: US (occurrence: US)
  Receive Date: 20140319
  Receipt Date: 20140319
  Transmission Date: 20141002
  Serious: No
  Sender: FDA-Public Use
  Company Number: US-SHIRE-US201400436

PATIENT
  Age: 20 Year
  Sex: Male
  Weight: 68.27 kg

DRUGS (3)
  1. VYVANSE [Suspect]
     Indication: PRODUCT USED FOR UNKNOWN INDICATION
     Dosage: 20 MG, UNKNOWN
     Route: 048
     Dates: start: 20140221, end: 201402
  2. VYVANSE [Suspect]
     Dosage: 40 MG, UNKNOWN
     Route: 048
     Dates: start: 201402, end: 2014
  3. VYVANSE [Suspect]
     Dosage: 60 MG, UNKNOWN
     Route: 048
     Dates: start: 2014

REACTIONS (4)
  - Urinary retention [Unknown]
  - Thirst [Not Recovered/Not Resolved]
  - Decreased appetite [Unknown]
  - Drug effect decreased [Unknown]
